FAERS Safety Report 16499325 (Version 1)
Quarter: 2019Q3

REPORT INFORMATION
  Report Type: Report from Study
  Country: None (occurrence: RO)
  Receive Date: 20190701
  Receipt Date: 20190701
  Transmission Date: 20191004
  Serious: Yes (Other)
  Sender: FDA-Public Use
  Company Number: RO-ABBVIE-19K-135-2833957-00

PATIENT
  Age: 63 Year
  Sex: Female

DRUGS (4)
  1. ASPENTER [Concomitant]
     Active Substance: ASPIRIN
     Indication: CARDIAC DISORDER
     Route: 048
     Dates: start: 201901
  2. HUMIRA [Suspect]
     Active Substance: ADALIMUMAB
     Indication: RHEUMATOID ARTHRITIS
     Route: 058
     Dates: start: 20100515
  3. METOPROLOL. [Concomitant]
     Active Substance: METOPROLOL
     Indication: CARDIAC DISORDER
     Route: 048
     Dates: start: 20181224
  4. ATACAND [Concomitant]
     Active Substance: CANDESARTAN CILEXETIL
     Indication: CARDIAC DISORDER
     Route: 048

REACTIONS (3)
  - Influenza [Not Recovered/Not Resolved]
  - Bone pain [Not Recovered/Not Resolved]
  - Heart valve stenosis [Not Recovered/Not Resolved]

NARRATIVE: CASE EVENT DATE: 201901
